FAERS Safety Report 21584721 (Version 1)
Quarter: 2022Q4

REPORT INFORMATION
  Report Type: Spontaneous
  Country: US (occurrence: US)
  Receive Date: 20221111
  Receipt Date: 20221111
  Transmission Date: 20230113
  Serious: No
  Sender: FDA-Public Use
  Company Number: US-LUPIN PHARMACEUTICALS INC.-2022-13280

PATIENT
  Age: 18 Month
  Sex: Male

DRUGS (4)
  1. CLONIDINE [Suspect]
     Active Substance: CLONIDINE
     Indication: Cerebellar ataxia
     Dosage: 5 MICROGRAM/KILOGRAM, TID
     Route: 065
  2. CLONIDINE [Suspect]
     Active Substance: CLONIDINE
     Dosage: 0.8 MICROGRAM/KILOGRAM, NIGHTLY
     Route: 065
  3. ACETAZOLAMIDE [Suspect]
     Active Substance: ACETAZOLAMIDE
     Indication: Cerebellar ataxia
     Dosage: 25 MILLIGRAM/KILOGRAM, QD
     Route: 065
  4. ACETAZOLAMIDE [Suspect]
     Active Substance: ACETAZOLAMIDE
     Indication: Prophylaxis

REACTIONS (1)
  - Off label use [Unknown]
